FAERS Safety Report 7298447-1 (Version None)
Quarter: 2011Q1

REPORT INFORMATION
  Report Type: 
  Country: None (occurrence: None)
  Receive Date: 20110217
  Receipt Date: 20110202
  Transmission Date: 20110831
  Serious: Yes (Hospitalization, Other)
  Sender: FDA-Public Use
  Company Number: US-BAYER-99/00392-USE

PATIENT
  Sex: Female
  Weight: 45.351 kg

DRUGS (6)
  1. CYPROHEPTADINE HCL [Concomitant]
  2. CLARITIN [Concomitant]
  3. XANAX [Concomitant]
  4. PAXIL [Concomitant]
  5. AMITRIPTYLINE [Concomitant]
  6. BETASERON [Suspect]
     Indication: MULTIPLE SCLEROSIS
     Dosage: 8 MIU, QOD
     Route: 058
     Dates: start: 19980526, end: 19981126

REACTIONS (7)
  - INJECTION SITE NECROSIS [None]
  - INJECTION SITE SCAR [None]
  - INJECTION SITE ULCER [None]
  - PAIN OF SKIN [None]
  - INJECTION SITE ATROPHY [None]
  - HOSPITALISATION [None]
  - IRRITABILITY [None]
